FAERS Safety Report 11098321 (Version 3)
Quarter: 2015Q3

REPORT INFORMATION
  Report Type: Spontaneous
  Country: JP (occurrence: JP)
  Receive Date: 20150507
  Receipt Date: 20150702
  Transmission Date: 20151125
  Serious: Yes (Hospitalization)
  Sender: FDA-Public Use
  Company Number: JP-ABBVIE-15P-087-1387990-00

PATIENT
  Age: 26 Year
  Sex: Male

DRUGS (1)
  1. VALPROATE SODIUM. [Suspect]
     Active Substance: VALPROATE SODIUM
     Indication: EPILEPSY
     Route: 065

REACTIONS (10)
  - Hyperammonaemia [Recovering/Resolving]
  - Loss of consciousness [Recovering/Resolving]
  - Fatigue [Recovering/Resolving]
  - Dehydration [Recovering/Resolving]
  - Decreased appetite [Recovering/Resolving]
  - Arthralgia [Recovering/Resolving]
  - Toxicity to various agents [Recovering/Resolving]
  - Intentional overdose [Recovering/Resolving]
  - Drug level increased [Recovering/Resolving]
  - Malaise [Recovering/Resolving]
